FAERS Safety Report 25169355 (Version 6)
Quarter: 2025Q4

REPORT INFORMATION
  Report Type: Spontaneous
  Country: CH (occurrence: CH)
  Receive Date: 20250407
  Receipt Date: 20251210
  Transmission Date: 20260117
  Serious: Yes (Other)
  Sender: SANDOZ
  Company Number: CH-002147023-NVSC2020CH112637

PATIENT
  Age: 84 Year
  Sex: Female
  Weight: 46 kg

DRUGS (10)
  1. FULVESTRANT [Suspect]
     Active Substance: FULVESTRANT
     Indication: Hormone receptor positive HER2 negative breast cancer
     Dosage: 250 MG, INJECTION NOS
     Route: 042
     Dates: start: 20200318
  2. KISQALI [Suspect]
     Active Substance: RIBOCICLIB SUCCINATE
     Dosage: 400 MG, QD (3 WEEKS ON, 1 WEEK OFF)
     Route: 048
     Dates: start: 20200514, end: 20200603
  3. KISQALI [Suspect]
     Active Substance: RIBOCICLIB SUCCINATE
     Indication: Hormone receptor positive HER2 negative breast cancer
     Dosage: 600 MG, QD (3 WEEKS ON, 1 WEEK OFF)
     Route: 048
     Dates: start: 20200319, end: 20200512
  4. KISQALI [Suspect]
     Active Substance: RIBOCICLIB SUCCINATE
     Dosage: UNK
     Route: 065
     Dates: end: 20250823
  5. ASPIRIN [Concomitant]
     Active Substance: ASPIRIN
     Indication: Peripheral arterial occlusive disease
     Dosage: 100 MG, FOR MORE THAN 5 YEARS
     Route: 048
  6. BETAHISTINE HYDROCHLORIDE [Concomitant]
     Active Substance: BETAHISTINE HYDROCHLORIDE
     Indication: Product used for unknown indication
     Dosage: 16 MG, FOR MORE THAN 5 YEARS
     Route: 048
  7. CALCIUM [Concomitant]
     Active Substance: CALCIUM
     Indication: Product used for unknown indication
     Dosage: UNK UKN, FOR MORE THAN 5 YEARS
     Route: 065
  8. CHOLECALCIFEROL [Concomitant]
     Active Substance: CHOLECALCIFEROL
     Indication: Product used for unknown indication
     Dosage: UNK
     Route: 048
  9. DOMPERIDONE [Concomitant]
     Active Substance: DOMPERIDONE
     Indication: Product used for unknown indication
     Dosage: 10 MG
     Route: 065
     Dates: start: 20200513
  10. MAGNESIUM [Concomitant]
     Active Substance: MAGNESIUM
     Indication: Osteopenia
     Dosage: 1 DF, FOR MORE THAN 5 YEARS
     Route: 065

REACTIONS (17)
  - Pancytopenia [Recovered/Resolved]
  - Rash follicular [Recovered/Resolved]
  - Electrocardiogram QT prolonged [Unknown]
  - Leukopenia [Recovered/Resolved]
  - Neutropenia [Recovered/Resolved]
  - Oesophageal pain [Recovered/Resolved]
  - Gastrooesophageal reflux disease [Recovered/Resolved]
  - Oesophageal motility disorder [Unknown]
  - Cough [Recovered/Resolved]
  - Chronic fatigue syndrome [Not Recovered/Not Resolved]
  - Palmar-plantar erythrodysaesthesia syndrome [Unknown]
  - Fine motor skill dysfunction [Unknown]
  - Epistaxis [Unknown]
  - Peripheral swelling [Unknown]
  - Decreased appetite [Unknown]
  - Diarrhoea [Unknown]
  - Anaemia [Recovered/Resolved]

NARRATIVE: CASE EVENT DATE: 20200325
